FAERS Safety Report 5855982-8 (Version None)
Quarter: 2008Q3

REPORT INFORMATION
  Report Type: 
  Country: None (occurrence: None)
  Receive Date: 20080821
  Receipt Date: 20080812
  Transmission Date: 20090109
  Serious: Yes (Congenital Anomaly)
  Sender: FDA-Public Use
  Company Number: US-ROSEMONTLT-UKRP0002253-12-AUG-2008

PATIENT
  Sex: Male

DRUGS (2)
  1. TAMOXIFEN CITRATE [Suspect]
     Indication: BREAST CANCER
     Dosage: 20 MG TIMES PR. 1. DAY TRANSPLACENTAL
     Route: 064
  2. RAMELTEON (RAMELTEON) [Concomitant]

REACTIONS (14)
  - APGAR SCORE LOW [None]
  - BACK DISORDER [None]
  - BODY DYSMORPHIC DISORDER [None]
  - CLEFT PALATE [None]
  - DYSPLASIA [None]
  - HIP DYSPLASIA [None]
  - MATERNAL DRUGS AFFECTING FOETUS [None]
  - MICROGENIA [None]
  - MULTIPLE CONGENITAL ABNORMALITIES [None]
  - OBSTRUCTIVE AIRWAYS DISORDER [None]
  - PIERRE ROBIN SYNDROME [None]
  - PREMATURE BABY [None]
  - RETROGNATHIA [None]
  - TALIPES [None]
